FAERS Safety Report 13536648 (Version 1)
Quarter: 2017Q2

REPORT INFORMATION
  Report Type: Spontaneous
  Country: US (occurrence: US)
  Receive Date: 20170511
  Receipt Date: 20170511
  Transmission Date: 20170830
  Serious: No
  Sender: FDA-Public Use
  Company Number: US-ASTRAZENECA-2017SE47238

PATIENT
  Age: 73 Year
  Sex: Male

DRUGS (3)
  1. BRILINTA [Suspect]
     Active Substance: TICAGRELOR
     Indication: PROPHYLAXIS
     Route: 048
     Dates: start: 20170410
  2. BRILINTA [Suspect]
     Active Substance: TICAGRELOR
     Indication: ANGIOGRAM
     Route: 048
     Dates: start: 20170410
  3. BRILINTA [Suspect]
     Active Substance: TICAGRELOR
     Indication: STENT PLACEMENT
     Route: 048
     Dates: start: 20170410

REACTIONS (2)
  - Dyspnoea [Recovered/Resolved]
  - Treatment noncompliance [Recovered/Resolved]
